FAERS Safety Report 11220333 (Version 2)
Quarter: 2015Q3

REPORT INFORMATION
  Report Type: Report from Study
  Country: AU (occurrence: None)
  Receive Date: 20150624
  Receipt Date: 20150723
  Transmission Date: 20151125
  Serious: Yes (Hospitalization)
  Sender: FDA-Public Use
  Company Number: 2015-11604

PATIENT
  Sex: Female
  Weight: 75 kg

DRUGS (13)
  1. TRAMADOL (TRAMADOL) [Concomitant]
     Active Substance: TRAMADOL
  2. NEXIUM [Concomitant]
     Active Substance: ESOMEPRAZOLE MAGNESIUM
  3. BENOXINATE HYDROCHLORIDE (OXYBUPROCAINE HYDROCHLORIDE) [Concomitant]
  4. CARVEDILOL (CARVEDILOL) [Concomitant]
     Active Substance: CARVEDILOL
  5. METAMUCIL (PLANTAGO OVATA) [Concomitant]
  6. FLUORESCEIN (FLUORESCEIN) [Concomitant]
  7. ENDEP (AMIITRIPTYLINE HYDROCHLORIDE) [Concomitant]
  8. PANADOL OSTEO (PARACETAMOL) [Concomitant]
  9. AFLIBERCEPT IAI OR SHAM (CODE NOT BROKEN) INJECTION [Suspect]
     Active Substance: AFLIBERCEPT
     Indication: POLYPOIDAL CHOROIDAL VASCULOPATHY
     Route: 031
     Dates: start: 20150326, end: 20150326
  10. INDOCYANINE GREEN. [Concomitant]
     Active Substance: INDOCYANINE GREEN
  11. CLOPIDOGREL [Concomitant]
     Active Substance: CLOPIDOGREL BISULFATE
  12. VAGIFEM (ESTRADIOL) [Concomitant]
  13. MYDRIACYL (TROPICAMIDE) [Concomitant]

REACTIONS (2)
  - Hysterectomy [None]
  - Vaginal operation [None]

NARRATIVE: CASE EVENT DATE: 20150609
